FAERS Safety Report 4719533-3 (Version None)
Quarter: 2005Q3

REPORT INFORMATION
  Report Type: 
  Country: None (occurrence: None)
  Receive Date: 20050719
  Receipt Date: 20050719
  Transmission Date: 20060218
  Serious: Yes (Disabling)
  Sender: FDA-Public Use
  Company Number: None

PATIENT
  Age: 39 Year
  Sex: Male
  Weight: 63.5036 kg

DRUGS (1)
  1. CRESTOR [Suspect]
     Indication: BLOOD CHOLESTEROL ABNORMAL
     Dosage: 10 MG PO ORAL
     Route: 048
     Dates: start: 20040410, end: 20050509

REACTIONS (2)
  - DIAPHRAGMATIC PARALYSIS [None]
  - MUSCULAR WEAKNESS [None]
